FAERS Safety Report 9596423 (Version 1)
Quarter: 2013Q4

REPORT INFORMATION
  Report Type: Spontaneous
  Country: US (occurrence: US)
  Receive Date: 20131004
  Receipt Date: 20131004
  Transmission Date: 20140711
  Serious: No
  Sender: FDA-Public Use
  Company Number: US-TEVA-435014USA

PATIENT
  Sex: Female

DRUGS (3)
  1. BENDAMUSTINE [Suspect]
     Indication: PRODUCT USED FOR UNKNOWN INDICATION
  2. BORTEZOMIB [Suspect]
     Indication: PRODUCT USED FOR UNKNOWN INDICATION
  3. DEXAMETHASONE [Suspect]
     Indication: PRODUCT USED FOR UNKNOWN INDICATION

REACTIONS (5)
  - Substance-induced psychotic disorder [Unknown]
  - Substance-induced mood disorder [Unknown]
  - Headache [Unknown]
  - Feeling abnormal [Unknown]
  - Full blood count decreased [Unknown]
